FAERS Safety Report 4303879-7 (Version None)
Quarter: 2004Q1

REPORT INFORMATION
  Report Type: 
  Country: None (occurrence: None)
  Receive Date: 20040225
  Receipt Date: 20040212
  Transmission Date: 20041129
  Serious: Yes (Hospitalization)
  Sender: FDA-Public Use
  Company Number: CH-GLAXOSMITHKLINE-B0323912A

PATIENT
  Age: 17 Year
  Sex: Female

DRUGS (1)
  1. AUGMENTIN [Suspect]
     Indication: TONSILLITIS
     Route: 048
     Dates: start: 20040107, end: 20040112

REACTIONS (5)
  - INFECTIOUS MONONUCLEOSIS [None]
  - LYMPHADENOPATHY [None]
  - PRURITUS [None]
  - RASH ERYTHEMATOUS [None]
  - RASH MACULO-PAPULAR [None]
